FAERS Safety Report 14129177 (Version 1)
Quarter: 2017Q4

REPORT INFORMATION
  Report Type: Spontaneous
  Country: DE (occurrence: DE)
  Receive Date: 20171026
  Receipt Date: 20171026
  Transmission Date: 20180321
  Serious: Yes (Hospitalization)
  Sender: FDA-Public Use
  Company Number: DE-TEVA-818449GER

PATIENT
  Age: 70 Year
  Sex: Male

DRUGS (2)
  1. PREDNISOLONE. [Suspect]
     Active Substance: PREDNISOLONE
     Indication: COLITIS ULCERATIVE
     Dosage: 80 MILLIGRAM DAILY; FOR 3 MONTHS
     Route: 065
  2. ASPIRIN. [Concomitant]
     Active Substance: ASPIRIN
     Dosage: 100 MILLIGRAM DAILY;
     Route: 065

REACTIONS (5)
  - Pelvic venous thrombosis [Unknown]
  - Pulmonary embolism [Unknown]
  - Vena cava thrombosis [Unknown]
  - Hypercoagulation [Unknown]
  - Deep vein thrombosis [Unknown]
